FAERS Safety Report 14841638 (Version 2)
Quarter: 2018Q2

REPORT INFORMATION
  Report Type: Spontaneous
  Country: US (occurrence: US)
  Receive Date: 20180503
  Receipt Date: 20180627
  Transmission Date: 20180711
  Serious: Yes (Death, Other)
  Sender: FDA-Public Use
  Company Number: US-LUPIN PHARMACEUTICALS INC.-2016-05128

PATIENT
  Age: 5 Decade
  Sex: Male

DRUGS (5)
  1. ZOLPIDEM [Suspect]
     Active Substance: ZOLPIDEM\ZOLPIDEM TARTRATE
     Indication: INSOMNIA
     Dosage: 5 MG, UNK
     Route: 065
  2. ALPRAZOLAM. [Suspect]
     Active Substance: ALPRAZOLAM
     Indication: INSOMNIA
     Dosage: 5 MG, UNK
     Route: 065
  3. HELIUM. [Suspect]
     Active Substance: HELIUM
     Indication: PRODUCT USED FOR UNKNOWN INDICATION
     Dosage: UNK
     Route: 065
  4. ATORVASTATIN [Suspect]
     Active Substance: ATORVASTATIN
     Indication: HYPERLIPIDAEMIA
     Dosage: 10 MG, UNK
     Route: 065
  5. FLONASE [Concomitant]
     Active Substance: FLUTICASONE PROPIONATE
     Indication: PRODUCT USED FOR UNKNOWN INDICATION
     Dosage: UNK
     Route: 065

REACTIONS (14)
  - Completed suicide [Fatal]
  - Irritability [Unknown]
  - Skin irritation [Unknown]
  - Deafness [Unknown]
  - Sleep disorder [Unknown]
  - Eczema [Unknown]
  - Impatience [Unknown]
  - Aggression [Unknown]
  - Paranoia [Unknown]
  - Myalgia [Unknown]
  - Memory impairment [Unknown]
  - Depression [Unknown]
  - Abnormal behaviour [Unknown]
  - Personality change [Unknown]
